FAERS Safety Report 7860524-1 (Version None)
Quarter: 2011Q4

REPORT INFORMATION
  Report Type: 
  Country: None (occurrence: None)
  Receive Date: 20111027
  Receipt Date: 20111025
  Transmission Date: 20120403
  Serious: No
  Sender: FDA-Public Use
  Company Number: US-PFIZER INC-2011261151

PATIENT
  Sex: Female
  Weight: 73.923 kg

DRUGS (3)
  1. LIPITOR [Suspect]
     Indication: HEART RATE INCREASED
     Dosage: UNK, DAILY
     Route: 048
     Dates: start: 20110101
  2. CYMBALTA [Concomitant]
     Indication: DEPRESSION
     Dosage: 90 MG, DAILY
  3. LIPITOR [Suspect]
     Indication: BLOOD CHOLESTEROL INCREASED

REACTIONS (2)
  - PAIN [None]
  - HEADACHE [None]
